FAERS Safety Report 23714353 (Version 1)
Quarter: 2024Q2

REPORT INFORMATION
  Report Type: Spontaneous
  Country: KR (occurrence: None)
  Receive Date: 20240405
  Receipt Date: 20240405
  Transmission Date: 20240716
  Serious: Yes (Hospitalization)
  Sender: FDA-Public Use
  Company Number: 2024A038465

PATIENT
  Age: 69 Year
  Sex: Female
  Weight: 46.4 kg

DRUGS (20)
  1. NEXIUM [Suspect]
     Active Substance: ESOMEPRAZOLE MAGNESIUM
     Indication: Prophylaxis against gastrointestinal ulcer
     Dosage: 1 DOSAGE FORM
     Route: 048
     Dates: start: 20230205, end: 20230215
  2. BEVACIZUMAB [Suspect]
     Active Substance: BEVACIZUMAB
     Indication: Colorectal cancer metastatic
     Dosage: 230 MILLIGRAM
     Route: 042
     Dates: start: 20230221
  3. BEVACIZUMAB [Suspect]
     Active Substance: BEVACIZUMAB
     Indication: Colorectal cancer metastatic
     Dosage: 230 MILLIGRAM
     Route: 042
     Dates: start: 20221213, end: 20230101
  4. OXALIPLATIN [Suspect]
     Active Substance: OXALIPLATIN
     Indication: Colorectal cancer
     Dosage: 85 MILLIGRAM PER SQUARE METER
     Route: 042
     Dates: start: 20221213, end: 20221227
  5. OXALIPLATIN [Suspect]
     Active Substance: OXALIPLATIN
     Indication: Rectal cancer
     Dosage: 85 MILLIGRAM PER SQUARE METER
     Route: 042
     Dates: start: 20221213, end: 20221227
  6. OXALIPLATIN [Suspect]
     Active Substance: OXALIPLATIN
     Indication: Colorectal cancer
     Dosage: 95 MILLIGRAM
     Route: 042
     Dates: start: 20230110
  7. OXALIPLATIN [Suspect]
     Active Substance: OXALIPLATIN
     Indication: Rectal cancer
     Dosage: 95 MILLIGRAM
     Route: 042
     Dates: start: 20230110
  8. LEUCOVORIN CALCIUM [Suspect]
     Active Substance: LEUCOVORIN CALCIUM
     Indication: Rectal cancer
     Dosage: 220 MILLIGRAM
     Route: 042
     Dates: start: 20230110
  9. LEUCOVORIN CALCIUM [Suspect]
     Active Substance: LEUCOVORIN CALCIUM
     Indication: Colorectal cancer
     Dosage: 220 MILLIGRAM
     Route: 042
     Dates: start: 20230110
  10. LEUCOVORIN CALCIUM [Suspect]
     Active Substance: LEUCOVORIN CALCIUM
     Indication: Rectal cancer
     Dosage: 200 MILLIGRAM PER SQUARE METER
     Route: 042
     Dates: start: 20221213, end: 20221227
  11. LEUCOVORIN CALCIUM [Suspect]
     Active Substance: LEUCOVORIN CALCIUM
     Indication: Colorectal cancer
     Dosage: 200 MILLIGRAM PER SQUARE METER
     Route: 042
     Dates: start: 20221213, end: 20221227
  12. FLUOROURACIL [Suspect]
     Active Substance: FLUOROURACIL
     Indication: Colorectal cancer
     Dosage: 400 MILLIGRAM PER SQUARE METER
     Route: 042
     Dates: start: 20221213, end: 20221227
  13. FLUOROURACIL [Suspect]
     Active Substance: FLUOROURACIL
     Indication: Rectal cancer
     Dosage: 400 MILLIGRAM PER SQUARE METER
     Route: 042
     Dates: start: 20221213, end: 20221227
  14. FLUOROURACIL [Suspect]
     Active Substance: FLUOROURACIL
     Indication: Colorectal cancer
     Dosage: 2400 MILLIGRAM PER SQUARE METER
     Route: 042
     Dates: start: 20221125, end: 20221227
  15. FLUOROURACIL [Suspect]
     Active Substance: FLUOROURACIL
     Indication: Rectal cancer
     Dosage: 2400 MILLIGRAM PER SQUARE METER
     Route: 042
     Dates: start: 20221125, end: 20221227
  16. FLUOROURACIL [Suspect]
     Active Substance: FLUOROURACIL
     Indication: Colorectal cancer
     Dosage: 442 MILLIGRAM
     Route: 042
     Dates: start: 20230110
  17. FLUOROURACIL [Suspect]
     Active Substance: FLUOROURACIL
     Indication: Rectal cancer
     Dosage: 442 MILLIGRAM
     Route: 042
     Dates: start: 20230110
  18. METOCLOPRAMIDE [Suspect]
     Active Substance: METOCLOPRAMIDE
     Indication: Prophylaxis of nausea and vomiting
     Dosage: 2 DOSAGE FORM
     Route: 048
     Dates: start: 20221129
  19. MOSAPRIDE CITRATE DIHYDRATE [Suspect]
     Active Substance: MOSAPRIDE CITRATE DIHYDRATE
     Indication: Prophylaxis against gastrointestinal ulcer
     Dosage: 1 DOSAGE FORM
     Route: 048
     Dates: start: 20230203
  20. LACTULOSE [Suspect]
     Active Substance: LACTULOSE
     Indication: Constipation prophylaxis
     Route: 048
     Dates: start: 20230205, end: 20230210

REACTIONS (1)
  - Intestinal obstruction [Recovered/Resolved]

NARRATIVE: CASE EVENT DATE: 20230128
